FAERS Safety Report 15193894 (Version 1)
Quarter: 2018Q3

REPORT INFORMATION
  Report Type: Spontaneous
  Country: US (occurrence: US)
  Receive Date: 20180725
  Receipt Date: 20180725
  Transmission Date: 20181010
  Serious: No
  Sender: FDA-Public Use
  Company Number: US-BAYER-2018-136007

PATIENT
  Age: 85 Year
  Sex: Female

DRUGS (1)
  1. MIRALAX [Suspect]
     Active Substance: POLYETHYLENE GLYCOL 3350

REACTIONS (6)
  - Incorrect drug administration duration [Unknown]
  - Abdominal discomfort [Unknown]
  - Underdose [Unknown]
  - Constipation [Unknown]
  - Product use in unapproved indication [Unknown]
  - Off label use [None]
